FAERS Safety Report 5408328-3 (Version None)
Quarter: 2007Q3

REPORT INFORMATION
  Report Type: 
  Country: None (occurrence: None)
  Receive Date: 20070803
  Receipt Date: 20070705
  Transmission Date: 20080115
  Serious: Yes (Hospitalization, Other)
  Sender: FDA-Public Use
  Company Number: 2007RR-08466

PATIENT
  Age: 74 Year
  Sex: Male

DRUGS (3)
  1. CEFACLOR [Suspect]
     Indication: BRONCHITIS
     Dosage: 375 MG, ORAL
     Route: 048
     Dates: start: 20070617, end: 20070617
  2. PREDNISOLONE [Concomitant]
  3. VENTOLON (SALBUTAMOL) [Concomitant]

REACTIONS (4)
  - CHEST DISCOMFORT [None]
  - DIZZINESS [None]
  - DYSPNOEA [None]
  - HYPERHIDROSIS [None]
